FAERS Safety Report 14753438 (Version 9)
Quarter: 2019Q1

REPORT INFORMATION
  Report Type: Spontaneous
  Country: US (occurrence: US)
  Receive Date: 20180412
  Receipt Date: 20190311
  Transmission Date: 20190417
  Serious: Yes (Hospitalization, Other)
  Sender: FDA-Public Use
  Company Number: US-PFIZER INC-2018145617

PATIENT
  Age: 29 Year
  Sex: Male

DRUGS (2)
  1. ZIPRASIDONE HCL [Suspect]
     Active Substance: ZIPRASIDONE HYDROCHLORIDE
     Indication: TOURETTE^S DISORDER
     Dosage: 40 MG, DAILY
  2. ZIPRASIDONE HCL [Suspect]
     Active Substance: ZIPRASIDONE HYDROCHLORIDE
     Indication: OBSESSIVE-COMPULSIVE DISORDER

REACTIONS (5)
  - Blood creatine phosphokinase increased [Recovered/Resolved]
  - Respiratory muscle weakness [Recovered/Resolved]
  - Product use in unapproved indication [Unknown]
  - Muscular weakness [Recovered/Resolved]
  - Myopathy toxic [Recovering/Resolving]
